FAERS Safety Report 15460163 (Version 1)
Quarter: 2018Q4

REPORT INFORMATION
  Report Type: Spontaneous
  Country: US (occurrence: US)
  Receive Date: 20181001
  Receipt Date: 20181001
  Transmission Date: 20190204
  Serious: Yes (Death, Life-Threatening)
  Sender: FDA-Public Use
  Company Number: None

PATIENT
  Age: 85 Year
  Sex: Female

DRUGS (1)
  1. PACLITAXEL. [Suspect]
     Active Substance: PACLITAXEL

REACTIONS (6)
  - Pneumothorax [None]
  - Pulseless electrical activity [None]
  - Unresponsive to stimuli [None]
  - Cardiac arrest [None]
  - Ventricular fibrillation [None]
  - Shock [None]

NARRATIVE: CASE EVENT DATE: 20180226
